FAERS Safety Report 7313573-6 (Version None)
Quarter: 2011Q1

REPORT INFORMATION
  Report Type: 
  Country: None (occurrence: None)
  Receive Date: 20110215
  Receipt Date: 20110215
  Transmission Date: 20110831
  Serious: Yes (Life-Threatening)
  Sender: FDA-Public Use
  Company Number: None

PATIENT
  Sex: Female
  Weight: 79.3795 kg

DRUGS (1)
  1. CHANTIX [Suspect]
     Indication: SMOKING CESSATION THERAPY
     Dates: start: 20101028, end: 20101115

REACTIONS (4)
  - HEART RATE INCREASED [None]
  - FATIGUE [None]
  - WEIGHT DECREASED [None]
  - VISION BLURRED [None]
